FAERS Safety Report 8584483-1 (Version None)
Quarter: 2012Q3

REPORT INFORMATION
  Report Type: 
  Country: None (occurrence: None)
  Receive Date: 20120810
  Receipt Date: 20120806
  Transmission Date: 20120928
  Serious: No
  Sender: FDA-Public Use
  Company Number: US-PFIZER INC-2012191240

PATIENT
  Age: 53 Year
  Sex: Female
  Weight: 91 kg

DRUGS (7)
  1. SYNTHROID [Concomitant]
     Indication: HYPOTHYROIDISM
     Dosage: UNK
  2. PRISTIQ [Suspect]
     Dosage: 12.5 MG, ALTERNATE DAY
     Route: 048
     Dates: start: 20120701
  3. PRISTIQ [Suspect]
     Dosage: 25 MG, ALTERNATE DAY
     Route: 048
     Dates: start: 20120701, end: 20120701
  4. PRISTIQ [Suspect]
     Indication: DEPRESSION
     Dosage: 50 MG, 1X/DAY
     Route: 048
     Dates: start: 20110501, end: 20120701
  5. PRISTIQ [Suspect]
     Dosage: 50 MG, ALTERNATE DAY
     Route: 048
     Dates: start: 20120701, end: 20120701
  6. ESTRADIOL [Concomitant]
     Dosage: UNK
  7. PROGESTERONE [Concomitant]
     Dosage: UNK

REACTIONS (10)
  - WITHDRAWAL SYNDROME [None]
  - VISION BLURRED [None]
  - SOMNOLENCE [None]
  - WEIGHT INCREASED [None]
  - FATIGUE [None]
  - DIZZINESS [None]
  - HEADACHE [None]
  - MYALGIA [None]
  - FEELING ABNORMAL [None]
  - LETHARGY [None]
